FAERS Safety Report 16063009 (Version 2)
Quarter: 2019Q1

REPORT INFORMATION
  Report Type: Report from Study
  Country: US (occurrence: US)
  Receive Date: 20190312
  Receipt Date: 20190319
  Transmission Date: 20190418
  Serious: No
  Sender: FDA-Public Use
  Company Number: US-AMGEN-USASP2019034075

PATIENT
  Age: 81 Year
  Sex: Female

DRUGS (1)
  1. PROLIA [Suspect]
     Active Substance: DENOSUMAB
     Indication: OSTEOPOROSIS
     Dosage: UNK
     Route: 065
     Dates: end: 201812

REACTIONS (8)
  - Tooth fracture [Unknown]
  - Peripheral swelling [Unknown]
  - Dry skin [Unknown]
  - Pain [Unknown]
  - Contusion [Not Recovered/Not Resolved]
  - Skin discolouration [Unknown]
  - Fall [Unknown]
  - Limb discomfort [Unknown]

NARRATIVE: CASE EVENT DATE: 2018
